FAERS Safety Report 6500832-X (Version None)
Quarter: 2009Q4

REPORT INFORMATION
  Report Type: 
  Country: None (occurrence: None)
  Receive Date: 20091216
  Receipt Date: 20090316
  Transmission Date: 20100525
  Serious: No
  Sender: FDA-Public Use
  Company Number: A0773511A

PATIENT
  Age: 38 Year

DRUGS (2)
  1. COMMIT [Suspect]
     Dates: start: 20090316, end: 20090316
  2. COMMIT [Suspect]

REACTIONS (4)
  - DYSPEPSIA [None]
  - FEELING ABNORMAL [None]
  - NAUSEA [None]
  - VOMITING [None]
